FAERS Safety Report 7125812-5 (Version None)
Quarter: 2010Q4

REPORT INFORMATION
  Report Type: 
  Country: None (occurrence: None)
  Receive Date: 20101129
  Receipt Date: 20101119
  Transmission Date: 20110411
  Serious: Yes (Disabling)
  Sender: FDA-Public Use
  Company Number: B0686366A

PATIENT
  Age: 53 Year
  Sex: Female

DRUGS (3)
  1. OMACOR [Suspect]
     Dosage: 2000MG PER DAY
     Route: 048
     Dates: start: 20070703
  2. ASPECARD [Concomitant]
     Route: 065
  3. AMLODIPINE BESILATE [Concomitant]
     Route: 065

REACTIONS (10)
  - ABDOMINAL PAIN [None]
  - ASTHENIA [None]
  - BODY TEMPERATURE INCREASED [None]
  - CONSTIPATION [None]
  - DRUG TOXICITY [None]
  - GASTROOESOPHAGEAL REFLUX DISEASE [None]
  - NAUSEA [None]
  - OFF LABEL USE [None]
  - PAIN [None]
  - TACHYCARDIA [None]
